FAERS Safety Report 5737438-6 (Version None)
Quarter: 2008Q2

REPORT INFORMATION
  Report Type: 
  Country: None (occurrence: None)
  Receive Date: 20080514
  Receipt Date: 20080325
  Transmission Date: 20081010
  Serious: No
  Sender: FDA-Public Use
  Company Number: US-BRISTOL-MYERS SQUIBB COMPANY-14101034

PATIENT
  Age: 51 Year
  Sex: Female

DRUGS (5)
  1. IXEMPRA KIT [Suspect]
     Indication: BREAST CANCER METASTATIC
     Route: 042
     Dates: start: 20071214
  2. ZOFRAN [Concomitant]
     Dates: start: 20080303
  3. BENADRYL [Concomitant]
     Dates: start: 20080303
  4. TAGAMET [Concomitant]
     Dates: start: 20080303
  5. DEXAMETHASONE [Concomitant]
     Dates: start: 20080303

REACTIONS (1)
  - INJECTION SITE EXTRAVASATION [None]
